FAERS Safety Report 10176904 (Version 3)
Quarter: 2014Q2

REPORT INFORMATION
  Report Type: Spontaneous
  Country: US (occurrence: None)
  Receive Date: 20140514
  Receipt Date: 20140528
  Transmission Date: 20141212
  Serious: Yes (Other)
  Sender: FDA-Public Use
  Company Number: 2014-US-005649

PATIENT
  Age: 39 Year
  Sex: Female

DRUGS (1)
  1. XYREM [Suspect]
     Indication: PRODUCT USED FOR UNKNOWN INDICATION
     Dosage: DOSE ADJUSTMENTS, ORAL
     Route: 048
     Dates: start: 200304, end: 2003

REACTIONS (3)
  - Wrist fracture [None]
  - Fall [None]
  - Wrist surgery [None]
